FAERS Safety Report 5918875-3 (Version None)
Quarter: 2008Q4

REPORT INFORMATION
  Report Type: 
  Country: None (occurrence: None)
  Receive Date: 20081015
  Receipt Date: 20080903
  Transmission Date: 20090506
  Serious: No
  Sender: FDA-Public Use
  Company Number: US-BAYER-200832971NA

PATIENT
  Age: 47 Year
  Sex: Female

DRUGS (1)
  1. CLIMARA [Suspect]
     Indication: HORMONE REPLACEMENT THERAPY
     Route: 062
     Dates: start: 20080902

REACTIONS (4)
  - ASTHENIA [None]
  - DRY THROAT [None]
  - FEELING COLD [None]
  - NAUSEA [None]
